FAERS Safety Report 4515290-4 (Version None)
Quarter: 2004Q4

REPORT INFORMATION
  Report Type: 
  Country: None (occurrence: None)
  Receive Date: 20041130
  Receipt Date: 20041130
  Transmission Date: 20050328
  Serious: Yes (Hospitalization)
  Sender: FDA-Public Use
  Company Number: None

PATIENT
  Sex: Male

DRUGS (10)
  1. SUBOXONE [Suspect]
     Indication: DRUG DEPENDENCE
     Dosage: 1 TABLET QID ORAL
     Route: 048
     Dates: start: 20040802, end: 20040802
  2. SUBOXONE [Suspect]
     Indication: DRUG DEPENDENCE
     Dosage: 1 TABLET BID ORAL
     Route: 048
     Dates: start: 20040803, end: 20040805
  3. APAP TAB [Concomitant]
  4. AUGMENTIN '125' [Concomitant]
  5. GABAPENTIN [Concomitant]
  6. GLYBURIDE [Concomitant]
  7. LISINOPRIL [Concomitant]
  8. LOPERAMIDE HCL [Concomitant]
  9. METFORMIN HCL [Concomitant]
  10. OMEPRAZOLE [Concomitant]

REACTIONS (1)
  - DRUG WITHDRAWAL SYNDROME [None]
